FAERS Safety Report 25268514 (Version 1)
Quarter: 2025Q2

REPORT INFORMATION
  Report Type: Spontaneous
  Country: FR (occurrence: FR)
  Receive Date: 20250505
  Receipt Date: 20250505
  Transmission Date: 20250717
  Serious: Yes (Hospitalization)
  Sender: ACCORD
  Company Number: None

PATIENT
  Age: 53 Year
  Sex: Female
  Weight: 88 kg

DRUGS (33)
  1. CARBOPLATIN [Suspect]
     Active Substance: CARBOPLATIN
     Indication: Disseminated large cell lymphoma
     Dates: start: 20240417, end: 20240417
  2. CYTARABINE [Suspect]
     Active Substance: CYTARABINE
     Indication: Disseminated large cell lymphoma
     Dates: start: 20240417, end: 20240418
  3. BACTRIM [Concomitant]
     Active Substance: SULFAMETHOXAZOLE\TRIMETHOPRIM
     Indication: Opportunistic infection prophylaxis
  4. GABAPENTIN [Concomitant]
     Active Substance: GABAPENTIN
     Indication: Neuralgia
  5. METHOTREXATE [Concomitant]
     Active Substance: METHOTREXATE
     Indication: Disseminated large cell lymphoma
     Dates: start: 20240130, end: 20240130
  6. PROCARBAZINE HYDROCHLORIDE [Concomitant]
     Active Substance: PROCARBAZINE HYDROCHLORIDE
     Indication: Disseminated large cell lymphoma
     Dosage: STRENGTH: 50 MG
     Dates: start: 20240130, end: 20240206
  7. RITUXIMAB [Suspect]
     Active Substance: RITUXIMAB
     Indication: Disseminated large cell lymphoma
     Dates: start: 20240130, end: 20240130
  8. VALACYCLOVIR HYDROCHLORIDE [Concomitant]
     Active Substance: VALACYCLOVIR HYDROCHLORIDE
     Indication: Opportunistic infection prophylaxis
  9. VINCRISTINE [Concomitant]
     Active Substance: VINCRISTINE
     Indication: Disseminated large cell lymphoma
     Dates: start: 20240130, end: 20240130
  10. ZOPICLONE [Concomitant]
     Active Substance: ZOPICLONE
     Indication: Insomnia
  11. CYTARABINE [Suspect]
     Active Substance: CYTARABINE
     Indication: Disseminated large cell lymphoma
     Dates: start: 20240531, end: 20240601
  12. METHOTREXATE [Concomitant]
     Active Substance: METHOTREXATE
     Indication: Disseminated large cell lymphoma
     Dates: start: 20240214, end: 20240214
  13. METHOTREXATE [Concomitant]
     Active Substance: METHOTREXATE
     Indication: Disseminated large cell lymphoma
     Dates: start: 20240305, end: 20240305
  14. METHOTREXATE [Concomitant]
     Active Substance: METHOTREXATE
     Indication: Disseminated large cell lymphoma
     Dates: start: 20241122, end: 20241122
  15. METHOTREXATE [Concomitant]
     Active Substance: METHOTREXATE
     Indication: Disseminated large cell lymphoma
     Dates: start: 20241206, end: 20241206
  16. METHOTREXATE [Concomitant]
     Active Substance: METHOTREXATE
     Indication: Disseminated large cell lymphoma
     Dates: start: 20241227, end: 20241227
  17. CARBOPLATIN [Suspect]
     Active Substance: CARBOPLATIN
     Indication: Disseminated large cell lymphoma
     Dates: start: 20240531, end: 20240531
  18. CARBOPLATIN [Suspect]
     Active Substance: CARBOPLATIN
     Indication: Disseminated large cell lymphoma
     Dates: start: 20241024, end: 20241024
  19. VINCRISTINE [Concomitant]
     Active Substance: VINCRISTINE
     Indication: Disseminated large cell lymphoma
     Dates: start: 20240214, end: 20240214
  20. VINCRISTINE [Concomitant]
     Active Substance: VINCRISTINE
     Indication: Disseminated large cell lymphoma
     Dates: start: 20240303, end: 20240305
  21. VINCRISTINE [Concomitant]
     Active Substance: VINCRISTINE
     Indication: Disseminated large cell lymphoma
     Dates: start: 20241122, end: 20241122
  22. VINCRISTINE [Concomitant]
     Active Substance: VINCRISTINE
     Indication: Disseminated large cell lymphoma
     Dates: start: 20241206, end: 20241206
  23. VINCRISTINE [Concomitant]
     Active Substance: VINCRISTINE
     Indication: Disseminated large cell lymphoma
     Dates: start: 20241227, end: 20241227
  24. PROCARBAZINE HYDROCHLORIDE [Concomitant]
     Active Substance: PROCARBAZINE HYDROCHLORIDE
     Indication: Disseminated large cell lymphoma
     Dosage: STRENGTH: 50 MG, PROTOCOL R-DHAP
     Dates: start: 20240305, end: 20240312
  25. PROCARBAZINE HYDROCHLORIDE [Concomitant]
     Active Substance: PROCARBAZINE HYDROCHLORIDE
     Indication: Disseminated large cell lymphoma
     Dosage: STRENGTH: 50 MG, R-MPV
     Dates: start: 20241122, end: 20241129
  26. PROCARBAZINE HYDROCHLORIDE [Concomitant]
     Active Substance: PROCARBAZINE HYDROCHLORIDE
     Indication: Disseminated large cell lymphoma
     Dosage: STRENGTH: 50 MG, R-MPV
     Dates: start: 20241227, end: 20250103
  27. RITUXIMAB [Suspect]
     Active Substance: RITUXIMAB
     Indication: Disseminated large cell lymphoma
     Dates: start: 20240305, end: 20240305
  28. RITUXIMAB [Suspect]
     Active Substance: RITUXIMAB
     Indication: Disseminated large cell lymphoma
     Dates: start: 20240417, end: 20240417
  29. RITUXIMAB [Suspect]
     Active Substance: RITUXIMAB
     Indication: Disseminated large cell lymphoma
     Dates: start: 20240531, end: 20240531
  30. RITUXIMAB [Suspect]
     Active Substance: RITUXIMAB
     Indication: Disseminated large cell lymphoma
     Dates: start: 20240909, end: 20240909
  31. RITUXIMAB [Suspect]
     Active Substance: RITUXIMAB
     Indication: Disseminated large cell lymphoma
     Dates: start: 20241023, end: 20241023
  32. RITUXIMAB [Suspect]
     Active Substance: RITUXIMAB
     Indication: Disseminated large cell lymphoma
     Dates: start: 20241122, end: 20241122
  33. RITUXIMAB [Suspect]
     Active Substance: RITUXIMAB
     Indication: Disseminated large cell lymphoma
     Dates: start: 20241227, end: 20241227

REACTIONS (1)
  - Pulmonary granuloma [Not Recovered/Not Resolved]

NARRATIVE: CASE EVENT DATE: 20240620
